FAERS Safety Report 8507021-8 (Version None)
Quarter: 2012Q3

REPORT INFORMATION
  Report Type: 
  Country: None (occurrence: None)
  Receive Date: 20120712
  Receipt Date: 20120710
  Transmission Date: 20120928
  Serious: Yes (Hospitalization, Other)
  Sender: FDA-Public Use
  Company Number: PHHY2012AU051580

PATIENT
  Sex: Female

DRUGS (5)
  1. RISPERIDONE [Concomitant]
     Dosage: 1 MG, BID
  2. VALPROATE SODIUM [Concomitant]
     Dosage: 12.5 MG, TID
     Route: 048
  3. SERTRALINE HYDROCHLORIDE [Concomitant]
     Dosage: 100 MG DAILY
     Route: 048
  4. METOPROLOL TARTRATE [Concomitant]
     Dosage: 12.5 MG, BID
     Route: 048
  5. CLOZARIL [Suspect]
     Indication: SCHIZOPHRENIA
     Dosage: 250 MG, (50 MG MORNING AND 200 MG AT NIGHT)
     Route: 048
     Dates: start: 19960628, end: 20120614

REACTIONS (12)
  - TROPONIN INCREASED [None]
  - C-REACTIVE PROTEIN INCREASED [None]
  - SOMATIC DELUSION [None]
  - MITRAL VALVE CALCIFICATION [None]
  - RENAL IMPAIRMENT [None]
  - MITRAL VALVE SCLEROSIS [None]
  - VENTRICULAR HYPERTROPHY [None]
  - SCHIZOPHRENIA [None]
  - PARANOIA [None]
  - TROPONIN T INCREASED [None]
  - MYOCARDITIS [None]
  - MYOCARDIAL ISCHAEMIA [None]
